FAERS Safety Report 5601031-6 (Version None)
Quarter: 2008Q1

REPORT INFORMATION
  Report Type: 
  Country: None (occurrence: None)
  Receive Date: 20080107
  Receipt Date: 20070301
  Transmission Date: 20080703
  Serious: Yes (Hospitalization)
  Sender: FDA-Public Use
  Company Number: DSA_29545_2007

PATIENT
  Sex: Female

DRUGS (7)
  1. CARDIZEM [Suspect]
     Indication: HEART RATE INCREASED
     Dosage: (120 MG QD ORAL)
     Route: 048
     Dates: start: 20070220, end: 20070222
  2. WELLBUTRIN XL [Suspect]
     Indication: DEPRESSION
     Dosage: (300 MG QD ORAL)
     Route: 048
  3. INEXIUM /01479302/ (NOT SPECIFIED) [Suspect]
     Indication: DYSPEPSIA
     Dosage: (40 MG QD ORAL)
     Route: 048
     Dates: start: 20061201, end: 20070201
  4. FLUXOETINE HYDROCHLORIDE [Concomitant]
  5. FLUTICASONE PROPIONATE W/SALMETEROL [Concomitant]
  6. BUDESONIDE [Concomitant]
  7. SALBUTAMOL [Concomitant]

REACTIONS (2)
  - BLOOD PRESSURE DECREASED [None]
  - HEADACHE [None]
